FAERS Safety Report 15122916 (Version 3)
Quarter: 2019Q3

REPORT INFORMATION
  Report Type: Report from Study
  Country: US (occurrence: US)
  Receive Date: 20180709
  Receipt Date: 20190806
  Transmission Date: 20191004
  Serious: Yes (Death, Hospitalization)
  Sender: FDA-Public Use
  Company Number: US-ACTELION-A-NJ2018-174836

PATIENT
  Sex: Female

DRUGS (1)
  1. OPSUMIT [Suspect]
     Active Substance: MACITENTAN
     Indication: PULMONARY ARTERIAL HYPERTENSION
     Dosage: 10 MG, UNK
     Route: 048
     Dates: start: 20170401, end: 20190702

REACTIONS (7)
  - Dyspnoea [Unknown]
  - Disease complication [Fatal]
  - Pulmonary oedema [Recovering/Resolving]
  - Pancreatitis [Unknown]
  - Pulmonary arterial hypertension [Fatal]
  - Chills [Unknown]
  - Escherichia bacteraemia [Unknown]
